FAERS Safety Report 7795332-3 (Version None)
Quarter: 2011Q4

REPORT INFORMATION
  Report Type: 
  Country: None (occurrence: None)
  Receive Date: 20111004
  Receipt Date: 20110926
  Transmission Date: 20120403
  Serious: Yes (Other)
  Sender: FDA-Public Use
  Company Number: PHHY2011FR47640

PATIENT
  Sex: Female

DRUGS (25)
  1. PRAMIPEXOLE DIHYDROCHLORIDE [Suspect]
     Dosage: 1 TABLET 3 TIMES PER DAY FROM THE SECOND WEEK
     Dates: start: 20080415, end: 20081021
  2. STALEVO 100 [Suspect]
     Dosage: 125 MG, ONE TABLET SIX TO EIGHT TIMES PER DAY
     Route: 048
     Dates: start: 20100401, end: 20101001
  3. STALEVO 100 [Suspect]
     Dosage: 150 MG, 1 TABLET 7 TO 8 TIMES PER DAY
     Route: 048
  4. PNEUMO [Concomitant]
     Dates: start: 20090908
  5. REQUIP [Suspect]
     Dosage: 8 MG THE MORNING AND 4 MG THE EVENING.
     Dates: start: 20100423
  6. PRAMIPEXOLE DIHYDROCHLORIDE [Suspect]
     Dosage: 0.5 TABLETS 3 TIMES PER DAY FOR FIRST WEEK
     Dates: start: 20080415
  7. STALEVO 100 [Suspect]
     Dosage: 125 MG, 1 TABLET SEVEN TIMES PER DAY
     Route: 048
     Dates: start: 20101001, end: 20110401
  8. REQUIP [Suspect]
     Dosage: 4MG PLUS 2 MG, IN THE MORNING.
     Dates: start: 20101020
  9. IMOVANE [Concomitant]
     Dosage: 7.5 MG, QD
     Dates: start: 20100212
  10. STALEVO 100 [Suspect]
     Dosage: 100 MG, 1 TABLET DAILY
     Route: 048
     Dates: start: 20090303, end: 20100401
  11. MODOPAR [Suspect]
     Dosage: 62.5 MG, 4 TIMES PER DAY
     Route: 048
     Dates: start: 20011211
  12. LEXOMIL [Concomitant]
     Dosage: 0.25 DF,IF REQUIRED.
     Dates: start: 20100211
  13. ZOLPIDEM [Concomitant]
     Dosage: 1 DF, DAILY
     Dates: start: 20090303
  14. ACETAMINOPHEN [Concomitant]
     Indication: PYREXIA
     Dosage: 1 DF, TID
     Dates: start: 20090908
  15. STALEVO 100 [Suspect]
     Dosage: 100 MG, ONE TABLET IN MORNING
     Route: 048
  16. PERGOLIDE MESYLATE [Suspect]
     Dosage: 0.5 THREE TIMES PER DAY THE FIRST WEEK
     Dates: start: 20011211, end: 20100423
  17. PERGOLIDE MESYLATE [Suspect]
     Dosage: 1 MG THREE TIMES PER DAY
     Dates: start: 20081021, end: 20100401
  18. MODOPAR [Suspect]
     Dosage: 125 MG, 7 TIMES PER DAY
     Route: 048
     Dates: start: 20080415, end: 20100423
  19. MYOLASTAN [Concomitant]
     Dosage: 50 MG, QD
     Dates: start: 20081021
  20. AUGMENTIN '125' [Concomitant]
     Dosage: 2 DF, TID
     Dates: start: 20090908
  21. STALEVO 100 [Suspect]
     Dosage: 200 MG, ONE TABLET IN MORNING
     Route: 048
  22. PERGOLIDE MESYLATE [Suspect]
     Dosage: 2 TABLETS 3 TIMES PER DAY THE SECOND WEEK
  23. MODOPAR [Suspect]
     Dosage: 125 MG, AT 1 DISPERSIBLE TABLET IN THE MORNING.
     Route: 048
     Dates: start: 20101020
  24. IMOVANE [Concomitant]
     Dosage: 2 DF, DAILY
     Dates: start: 20090908
  25. MUXOL [Concomitant]
     Dosage: 0.3 %, ORAL SOLUTION TWICE PER DAY.
     Route: 048
     Dates: start: 20090908

REACTIONS (9)
  - SUICIDAL IDEATION [None]
  - GAIT DISTURBANCE [None]
  - PATHOLOGICAL GAMBLING [None]
  - CRYING [None]
  - DEPRESSION [None]
  - TREMOR [None]
  - DYSTONIA [None]
  - RIB FRACTURE [None]
  - FALL [None]
